FAERS Safety Report 6167060-1 (Version None)
Quarter: 2009Q2

REPORT INFORMATION
  Report Type: 
  Country: None (occurrence: None)
  Receive Date: 20090424
  Receipt Date: 20090414
  Transmission Date: 20091009
  Serious: Yes (Other)
  Sender: FDA-Public Use
  Company Number: AU-PFIZER INC-2009198061

PATIENT

DRUGS (1)
  1. CLEOCIN [Suspect]

REACTIONS (2)
  - PHARYNGEAL OEDEMA [None]
  - RASH [None]
